FAERS Safety Report 5959730-2 (Version None)
Quarter: 2008Q4

REPORT INFORMATION
  Report Type: 
  Country: None (occurrence: None)
  Receive Date: 20081119
  Receipt Date: 20081119
  Transmission Date: 20090506
  Serious: No
  Sender: FDA-Public Use
  Company Number: None

PATIENT
  Age: 83 Year
  Sex: Male
  Weight: 87 kg

DRUGS (6)
  1. WARFARIN SODIUM [Suspect]
     Indication: ATRIAL FIBRILLATION
     Dosage: 1-2 MG PO QD
     Route: 048
     Dates: start: 20081010, end: 20081013
  2. ALLOPURINOL [Concomitant]
  3. CEFEPIME [Concomitant]
  4. VANCOMYCIN HCL [Concomitant]
  5. EPOGEN [Concomitant]
  6. FE GLUCONATE [Concomitant]

REACTIONS (5)
  - CONFUSIONAL STATE [None]
  - HAEMOGLOBIN DECREASED [None]
  - HYPOTENSION [None]
  - INTERNATIONAL NORMALISED RATIO INCREASED [None]
  - LETHARGY [None]
